FAERS Safety Report 9192195 (Version 1)
Quarter: 2013Q1

REPORT INFORMATION
  Report Type: Spontaneous
  Country: IN (occurrence: None)
  Receive Date: 20130325
  Receipt Date: 20130325
  Transmission Date: 20140127
  Serious: Yes (Other)
  Sender: FDA-Public Use
  Company Number: FK201300846

PATIENT
  Sex: Male

DRUGS (3)
  1. METHYLPREDNISOLONE [Suspect]
     Indication: TRANSPLANT REJECTION
  2. PREDNISOLONE (PREDNISOLONE) [Suspect]
     Indication: TRANSPLANT REJECTION
     Dosage: TAPERING DOSE 100 MG-20 MG PER DAY,  ?
  3. ALGANCICLOVIR (VALGANCICLOVIR) [Concomitant]

REACTIONS (1)
  - Cytomegalovirus infection [None]
